FAERS Safety Report 16924100 (Version 1)
Quarter: 2019Q4

REPORT INFORMATION
  Report Type: Spontaneous
  Country: RO (occurrence: RO)
  Receive Date: 20191016
  Receipt Date: 20191016
  Transmission Date: 20200122
  Serious: Yes (Other)
  Sender: FDA-Public Use
  Company Number: RO-PFIZER INC-2019413263

PATIENT
  Age: 73 Year
  Sex: Female
  Weight: 80 kg

DRUGS (7)
  1. CONCOR [Concomitant]
     Active Substance: BISOPROLOL FUMARATE
     Dosage: UNK
  2. SUTENT [Suspect]
     Active Substance: SUNITINIB MALATE
     Indication: METASTATIC RENAL CELL CARCINOMA
     Dosage: 50 MG, CYCLIC (24 DAYS CURE/ 14 DAYS PAUSE)
     Route: 048
     Dates: start: 20190805, end: 20190912
  3. ATACAND [Concomitant]
     Active Substance: CANDESARTAN CILEXETIL
     Dosage: UNK
  4. PLAVIX [Concomitant]
     Active Substance: CLOPIDOGREL BISULFATE
     Dosage: UNK
  5. CAVINTON [Concomitant]
     Active Substance: VINPOCETINE
     Dosage: UNK
  6. PRAMISTAR [Concomitant]
     Active Substance: PRAMIRACETAM SULFATE
     Dosage: UNK
  7. DIUREX [Concomitant]
     Dosage: UNK

REACTIONS (18)
  - Blood glucose increased [Unknown]
  - Malnutrition [Unknown]
  - Red cell distribution width increased [Unknown]
  - Essential hypertension [Unknown]
  - Obesity [Unknown]
  - Neoplasm progression [Unknown]
  - Blood fibrinogen increased [Unknown]
  - Mean cell haemoglobin increased [Unknown]
  - Red blood cell sedimentation rate increased [Unknown]
  - Blood calcium decreased [Unknown]
  - Blood creatinine increased [Unknown]
  - Red blood cell count decreased [Unknown]
  - Blood magnesium decreased [Unknown]
  - Blood urea increased [Unknown]
  - Chronic kidney disease [Unknown]
  - Platelet distribution width increased [Unknown]
  - Type 2 diabetes mellitus [Unknown]
  - Mean cell volume increased [Unknown]

NARRATIVE: CASE EVENT DATE: 20190909
